FAERS Safety Report 5525257-5 (Version None)
Quarter: 2007Q4

REPORT INFORMATION
  Report Type: 
  Country: None (occurrence: None)
  Receive Date: 20071126
  Receipt Date: 20071121
  Transmission Date: 20080405
  Serious: Yes (Hospitalization)
  Sender: FDA-Public Use
  Company Number: FR-BRISTOL-MYERS SQUIBB COMPANY-13926035

PATIENT
  Age: 62 Year
  Sex: Male

DRUGS (6)
  1. AMOXICILLIN [Suspect]
     Indication: HELICOBACTER INFECTION
     Route: 048
     Dates: start: 20070808, end: 20070815
  2. FUNGIZONE [Suspect]
     Indication: OROPHARYNGEAL CANDIDIASIS
     Route: 048
     Dates: start: 20070801
  3. COLCHIMAX [Suspect]
     Indication: ARTHRALGIA
     Route: 048
     Dates: start: 20070716, end: 20070817
  4. ZECLAR [Suspect]
     Indication: HELICOBACTER INFECTION
     Route: 048
     Dates: start: 20070808, end: 20070815
  5. INEXIUM [Suspect]
     Indication: GASTRODUODENAL ULCER
     Route: 048
     Dates: start: 20070408, end: 20070815
  6. PREVISCAN [Concomitant]

REACTIONS (5)
  - ANAEMIA [None]
  - DYSPNOEA [None]
  - GENERAL PHYSICAL HEALTH DETERIORATION [None]
  - PANCYTOPENIA [None]
  - PYREXIA [None]
